FAERS Safety Report 5939586-4 (Version None)
Quarter: 2008Q4

REPORT INFORMATION
  Report Type: 
  Country: None (occurrence: None)
  Receive Date: 20081030
  Receipt Date: 20081020
  Transmission Date: 20090506
  Serious: Yes (Other)
  Sender: FDA-Public Use
  Company Number: TRP_05941_2008

PATIENT
  Sex: Female

DRUGS (9)
  1. RIBASPHERE [Suspect]
     Indication: HEPATITIS C
     Dosage: (400 MG BID ORAL)
     Route: 048
     Dates: start: 20080915
  2. PEGASYS [Suspect]
     Indication: HEPATITIS C
     Dosage: 180 UG 1X/WEEK SUBCUTANEOUS
     Route: 058
     Dates: start: 20080915
  3. EFFEXOR /01233802/ [Concomitant]
  4. SEROQUEL [Concomitant]
  5. LUNESTA [Concomitant]
  6. ALBUTEROL [Concomitant]
  7. PRILOSEC [Concomitant]
  8. KLONOPIN [Concomitant]
  9. AMITRIPTYLINE HCL [Concomitant]

REACTIONS (5)
  - ANOREXIA [None]
  - CHEST PAIN [None]
  - ECONOMIC PROBLEM [None]
  - GASTRIC ULCER [None]
  - TREATMENT NONCOMPLIANCE [None]
